FAERS Safety Report 10146943 (Version 1)
Quarter: 2014Q2

REPORT INFORMATION
  Report Type: Spontaneous
  Country: US (occurrence: None)
  Receive Date: 20140430
  Receipt Date: 20140430
  Transmission Date: 20141212
  Serious: Yes (Death)
  Sender: FDA-Public Use
  Company Number: None

PATIENT
  Age: 63 Year
  Sex: Female

DRUGS (18)
  1. PROPRANOLOL [Suspect]
     Indication: OVERDOSE
     Dosage: 30 MG, ONCE, PO
     Route: 048
     Dates: start: 20140122, end: 20140122
  2. CALCIUM CARBONATE [Concomitant]
  3. CHOLECALCIFEROL [Concomitant]
  4. FENTANYL [Concomitant]
  5. LACTULOSE [Concomitant]
  6. LANSOPRAZOLE [Concomitant]
  7. LEVOTHYROXINE [Concomitant]
  8. MILK OF MAGNESIA [Concomitant]
  9. MIDODTINE [Concomitant]
  10. MULTIVITAMIN [Concomitant]
  11. NYSTATIN TOPICAL [Concomitant]
  12. PIPERACILLIN/TAZOBACTAM [Concomitant]
  13. PROPRANOLOL [Concomitant]
  14. RIFAXIMIN [Concomitant]
  15. SEVELAMER [Concomitant]
  16. VANCOMYCIN [Concomitant]
  17. ZINC OXIDE / CODE LIVER OIL [Concomitant]
  18. NOREPINEPHRINE [Concomitant]

REACTIONS (2)
  - Hypotension [None]
  - Overdose [None]
